FAERS Safety Report 8005050-4 (Version None)
Quarter: 2011Q4

REPORT INFORMATION
  Report Type: 
  Country: None (occurrence: None)
  Receive Date: 20111223
  Receipt Date: 20111221
  Transmission Date: 20120403
  Serious: Yes (Life-Threatening, Other)
  Sender: FDA-Public Use
  Company Number: JP-CELGENEUS-087-21880-11010913

PATIENT
  Sex: Male
  Weight: 35 kg

DRUGS (7)
  1. ISOSORBIDE DINITRATE [Concomitant]
     Indication: ANGINA PECTORIS
     Dosage: 1 SHEET
     Route: 065
     Dates: start: 20101110
  2. BUFFERIN [Concomitant]
     Indication: PROPHYLAXIS
     Dosage: 81 MILLIGRAM
     Route: 048
     Dates: start: 20101110
  3. GLAKAY [Concomitant]
     Indication: OSTEOPOROSIS
     Dosage: 45 MILLIGRAM
     Route: 048
     Dates: start: 20101110
  4. DEXAMETHASONE ACETATE [Suspect]
     Indication: MULTIPLE MYELOMA
     Dosage: 20 MILLIGRAM
     Route: 048
     Dates: start: 20101110, end: 20101118
  5. REVLIMID [Suspect]
     Indication: MULTIPLE MYELOMA
     Dosage: 10 MILLIGRAM
     Route: 048
     Dates: start: 20101110, end: 20101119
  6. FAMOTIDINE [Concomitant]
     Indication: PROPHYLAXIS
     Dosage: 40 MILLIGRAM
     Route: 048
     Dates: start: 20101110
  7. SIGMART [Concomitant]
     Indication: ANGINA PECTORIS
     Dosage: 45 MILLIGRAM
     Route: 048
     Dates: start: 20101110

REACTIONS (1)
  - DELIRIUM [None]
